FAERS Safety Report 6695410-6 (Version None)
Quarter: 2010Q2

REPORT INFORMATION
  Report Type: 
  Country: None (occurrence: None)
  Receive Date: 20100422
  Receipt Date: 20100422
  Transmission Date: 20101027
  Serious: No
  Sender: FDA-Public Use
  Company Number: None

PATIENT
  Sex: Female
  Weight: 79.8331 kg

DRUGS (1)
  1. FOSAMAX PLUS D [Suspect]
     Indication: OSTEOPENIA
     Dosage: ONE WEEKLY PO - STARTED WITH FOSAMAX 10MG ONE QD
     Route: 048

REACTIONS (1)
  - STRESS FRACTURE [None]
